FAERS Safety Report 18424846 (Version 1)
Quarter: 2020Q4

REPORT INFORMATION
  Report Type: Report from Study
  Country: FR (occurrence: FR)
  Receive Date: 20201026
  Receipt Date: 20201026
  Transmission Date: 20210114
  Serious: Yes (Other)
  Sender: FDA-Public Use
  Company Number: FR-SUN PHARMACEUTICAL INDUSTRIES LTD-2020R1-264993

PATIENT
  Sex: Female

DRUGS (4)
  1. CARBOPLATIN. [Suspect]
     Active Substance: CARBOPLATIN
     Indication: SQUAMOUS CELL CARCINOMA
     Route: 065
  2. TAXOL [Suspect]
     Active Substance: PACLITAXEL
     Indication: NEOADJUVANT THERAPY
  3. TAXOL [Suspect]
     Active Substance: PACLITAXEL
     Indication: SQUAMOUS CELL CARCINOMA
     Route: 065
  4. CARBOPLATIN. [Suspect]
     Active Substance: CARBOPLATIN
     Indication: NEOADJUVANT THERAPY

REACTIONS (3)
  - Therapy partial responder [Unknown]
  - Exposure during pregnancy [Unknown]
  - Live birth [Unknown]
